FAERS Safety Report 6765641-5 (Version None)
Quarter: 2010Q2

REPORT INFORMATION
  Report Type: 
  Country: None (occurrence: None)
  Receive Date: 20100611
  Receipt Date: 20100519
  Transmission Date: 20101027
  Serious: Yes (Other)
  Sender: FDA-Public Use
  Company Number: DE-PFIZER INC-2010062897

PATIENT
  Age: 76 Year
  Sex: Female

DRUGS (1)
  1. DETRUSITOL [Suspect]
     Dosage: 4 MG, 1X/DAY
     Route: 048
     Dates: start: 20050101

REACTIONS (2)
  - BLADDER CATHETER PERMANENT [None]
  - MEDICAL DEVICE COMPLICATION [None]
